FAERS Safety Report 8064141-2 (Version None)
Quarter: 2012Q1

REPORT INFORMATION
  Report Type: 
  Country: None (occurrence: None)
  Receive Date: 20120123
  Receipt Date: 20120110
  Transmission Date: 20120608
  Serious: Yes (Other)
  Sender: FDA-Public Use
  Company Number: CZ-GLAXOSMITHKLINE-B0774905A

PATIENT
  Sex: Female

DRUGS (5)
  1. ALVESCO [Concomitant]
     Route: 055
  2. XYZAL [Concomitant]
     Route: 065
  3. FLUTICASONE FUROATE [Suspect]
     Indication: RHINITIS ALLERGIC
     Dosage: 2U PER DAY
     Route: 045
     Dates: start: 20100428
  4. EPINASTINE HYDROCHLORIDE [Concomitant]
     Route: 047
  5. ENAP [Concomitant]
     Route: 065

REACTIONS (2)
  - VISUAL ACUITY REDUCED [None]
  - INTRAOCULAR PRESSURE INCREASED [None]
